FAERS Safety Report 13845382 (Version 3)
Quarter: 2017Q3

REPORT INFORMATION
  Report Type: Report from Study
  Country: US (occurrence: US)
  Receive Date: 20170808
  Receipt Date: 20170829
  Transmission Date: 20171127
  Serious: Yes (Death, Hospitalization)
  Sender: FDA-Public Use
  Company Number: US-EISAI MEDICAL RESEARCH-EC-2017-029920

PATIENT
  Age: 75 Year
  Sex: Female
  Weight: 96 kg

DRUGS (17)
  1. LENVATINIB [Suspect]
     Active Substance: LENVATINIB
     Indication: ENDOMETRIAL CANCER
     Route: 048
     Dates: start: 20170322, end: 20170728
  2. POTASSIUM [Concomitant]
     Active Substance: POTASSIUM
  3. COLACE [Concomitant]
     Active Substance: DOCUSATE SODIUM
  4. MULTIVITAMIN WITH CALCIUM AND VITAMIN D [Concomitant]
  5. CIPROFLOXACIN. [Concomitant]
     Active Substance: CIPROFLOXACIN
  6. ASPIRIN. [Concomitant]
     Active Substance: ASPIRIN
  7. DETROL [Concomitant]
     Active Substance: TOLTERODINE TARTRATE
  8. AMLODIPINE [Concomitant]
     Active Substance: AMLODIPINE BESYLATE
  9. PEMBROLIZUMAB. [Suspect]
     Active Substance: PEMBROLIZUMAB
     Indication: ENDOMETRIAL CANCER
     Route: 041
     Dates: start: 20170322, end: 20170713
  10. TYLENOL [Concomitant]
     Active Substance: ACETAMINOPHEN
  11. LASIX [Concomitant]
     Active Substance: FUROSEMIDE
  12. MIRACLE MOUTHWASH ORAL SUSPENSION [Concomitant]
  13. MECLIZINE [Concomitant]
     Active Substance: MECLIZINE HYDROCHLORIDE
  14. MAGNESIUM SULFATE. [Concomitant]
     Active Substance: MAGNESIUM SULFATE
  15. LEVOTHYROXINE. [Concomitant]
     Active Substance: LEVOTHYROXINE
  16. PREDNISONE. [Concomitant]
     Active Substance: PREDNISONE
  17. PROTONIX [Concomitant]
     Active Substance: PANTOPRAZOLE SODIUM

REACTIONS (2)
  - Gastrointestinal perforation [Fatal]
  - Failure to thrive [Recovered/Resolved with Sequelae]

NARRATIVE: CASE EVENT DATE: 20170801
